FAERS Safety Report 10121360 (Version 1)
Quarter: 2014Q2

REPORT INFORMATION
  Report Type: Spontaneous
  Country: MY (occurrence: MY)
  Receive Date: 20140425
  Receipt Date: 20140425
  Transmission Date: 20141212
  Serious: Yes (Other)
  Sender: FDA-Public Use
  Company Number: MY-ROXANE LABORATORIES, INC.-2014-RO-00645RO

PATIENT
  Age: 37 Year
  Sex: Female

DRUGS (4)
  1. PROPRANOLOL [Suspect]
     Indication: HYPERTHYROIDISM
     Dosage: 30 MG
     Route: 065
  2. PROPRANOLOL [Suspect]
     Dosage: 20 MG
     Route: 065
  3. CARBAMAZEPINE [Suspect]
     Indication: EPILEPSY
     Dosage: 200 MG
     Route: 048
  4. CARBIMAZOLE [Suspect]
     Indication: HYPERTHYROIDISM
     Dosage: 15 MG
     Route: 065

REACTIONS (2)
  - Epilepsy [Unknown]
  - Drug clearance decreased [Unknown]
